FAERS Safety Report 15595828 (Version 1)
Quarter: 2018Q4

REPORT INFORMATION
  Report Type: Spontaneous
  Country: US (occurrence: US)
  Receive Date: 20181107
  Receipt Date: 20181107
  Transmission Date: 20190205
  Serious: No
  Sender: FDA-Public Use
  Company Number: US-SHIRE-US201842055

PATIENT
  Age: 88 Year
  Sex: Female
  Weight: 36.74 kg

DRUGS (12)
  1. SYSTANE (HYPROMELLOSE 2910 (4000 MPA.S)) [Concomitant]
     Active Substance: HYPROMELLOSE 2910 (4000 MPA.S)
     Indication: VISION BLURRED
     Route: 047
  2. BIOTIN [Concomitant]
     Active Substance: BIOTIN
     Indication: MADAROSIS
  3. LATANOPROST. [Concomitant]
     Active Substance: LATANOPROST
     Indication: GLAUCOMA
  4. LISINOPRIL. [Concomitant]
     Active Substance: LISINOPRIL
     Indication: GLAUCOMA
  5. METOPROLOL. [Concomitant]
     Active Substance: METOPROLOL
     Indication: GLAUCOMA
  6. KLONOPIN [Concomitant]
     Active Substance: CLONAZEPAM
     Indication: FEELING OF RELAXATION
  7. REFRESH [Concomitant]
     Active Substance: UNSPECIFIED INGREDIENT
     Indication: PRODUCT USED FOR UNKNOWN INDICATION
  8. XIIDRA [Suspect]
     Active Substance: LIFITEGRAST
     Indication: DRY EYE
     Dosage: 1 GTT, 2X/DAY:BID 5 % SOLUTION
     Route: 047
     Dates: start: 201808
  9. LEVOTHYROXINE. [Concomitant]
     Active Substance: LEVOTHYROXINE
     Indication: GLAUCOMA
  10. PROBIOTIC [Concomitant]
     Active Substance: PROBIOTICS NOS
     Indication: BLOOD CHOLESTEROL INCREASED
  11. PRAVASTATIN. [Concomitant]
     Active Substance: PRAVASTATIN
     Indication: BLOOD CHOLESTEROL INCREASED
  12. RESTASIS [Concomitant]
     Active Substance: CYCLOSPORINE
     Indication: PRODUCT USED FOR UNKNOWN INDICATION

REACTIONS (4)
  - Vision blurred [Unknown]
  - Instillation site pain [Unknown]
  - Instillation site irritation [Not Recovered/Not Resolved]
  - Instillation site reaction [Unknown]

NARRATIVE: CASE EVENT DATE: 201810
